FAERS Safety Report 10439023 (Version 3)
Quarter: 2014Q3

REPORT INFORMATION
  Report Type: Spontaneous
  Country: KR (occurrence: None)
  Receive Date: 20140904
  Receipt Date: 20140925
  Transmission Date: 20150326
  Serious: Yes (Hospitalization)
  Sender: FDA-Public Use
  Company Number: KR-JNJFOC-20140824108

PATIENT
  Age: 68 Year
  Sex: Male
  Weight: 75.9 kg

DRUGS (13)
  1. DIBUCAINE HYDROCHLORIDE [Concomitant]
     Active Substance: DIBUCAINE HYDROCHLORIDE
  2. HYDROCORTISONE (HYDROCORTISONE) [Concomitant]
     Active Substance: HYDROCORTISONE
  3. GRASIN (FILGRASTIM) [Concomitant]
     Active Substance: FILGRASTIM
  4. AMLODIPINE BESYLATE (AMLODIPINE BESILATE) [Concomitant]
     Active Substance: AMLODIPINE BESYLATE
  5. ESCULOSIDE [Concomitant]
     Active Substance: ESCULIN
  6. REPAGLINIDE (REPAGLINIDE) [Concomitant]
     Active Substance: REPAGLINIDE
  7. DACOGEN [Suspect]
     Active Substance: DECITABINE
     Indication: MYELODYSPLASTIC SYNDROME
     Route: 042
     Dates: start: 20131116, end: 20131120
  8. NEOMYCIN SULFATE. [Concomitant]
     Active Substance: NEOMYCIN SULFATE
  9. GLICLAZIDE (GLICLAZIDE) [Concomitant]
     Active Substance: GLICLAZIDE
  10. INSULIN GLARGINE (INSULIN GLARGINE) [Concomitant]
     Active Substance: INSULIN GLARGINE
  11. FLUNAZOLE [Concomitant]
     Active Substance: FLUCONAZOLE
  12. MEGESTROL ACETATE. [Concomitant]
     Active Substance: MEGESTROL ACETATE
  13. CITOPCIN (CIPROFLOXACIN HYDROCHLORIDE) [Concomitant]
     Active Substance: CIPROFLOXACIN HYDROCHLORIDE

REACTIONS (5)
  - Tonsillitis [None]
  - Pyrexia [None]
  - Gingivitis [None]
  - Oropharyngeal pain [None]
  - Periodontitis [None]

NARRATIVE: CASE EVENT DATE: 20131130
